FAERS Safety Report 4492418-6 (Version None)
Quarter: 2004Q4

REPORT INFORMATION
  Report Type: 
  Country: None (occurrence: None)
  Receive Date: 20041102
  Receipt Date: 20041102
  Transmission Date: 20050328
  Serious: Yes (Hospitalization)
  Sender: FDA-Public Use
  Company Number: None

PATIENT
  Age: 59 Year
  Sex: Female

DRUGS (2)
  1. MOISTURIZING 0.65 % GOLDLINE NASAL SPRAY [Suspect]
     Indication: NASAL DRYNESS
     Dosage: 1-2 SPRAYS Q3-4 H NASAL
     Route: 045
     Dates: start: 20041030, end: 20041030
  2. RHINOCORT [Concomitant]

REACTIONS (4)
  - BURNING SENSATION [None]
  - DISCOMFORT [None]
  - NASAL DISCOMFORT [None]
  - PHARYNGOLARYNGEAL PAIN [None]
